FAERS Safety Report 7576693-7 (Version None)
Quarter: 2011Q2

REPORT INFORMATION
  Report Type: 
  Country: None (occurrence: None)
  Receive Date: 20110628
  Receipt Date: 20090716
  Transmission Date: 20111010
  Serious: Yes (Death, Other)
  Sender: FDA-Public Use
  Company Number: US-BAYER-200829610NA

PATIENT
  Sex: Female
  Weight: 63.1 kg

DRUGS (18)
  1. NASAREL [Concomitant]
  2. NEPHROCAPS [Concomitant]
  3. FENTANYL [Concomitant]
     Dosage: UNK
  4. MAGNEVIST [Suspect]
     Indication: IMAGING PROCEDURE
     Dosage: UNK
     Dates: start: 20020423, end: 20020423
  5. FERROUS SULFATE TAB [Concomitant]
  6. CLONIDINE [Concomitant]
  7. RENAGEL [Concomitant]
  8. NIFEDIPINE [Concomitant]
  9. LOVENOX [Concomitant]
  10. OMNISCAN [Suspect]
     Indication: IMAGING PROCEDURE
     Dosage: UNK
     Dates: start: 20040502, end: 20040502
  11. GADOLINIUM IN UNSPECIFIED DRUG [Suspect]
     Indication: NUCLEAR MAGNETIC RESONANCE IMAGING
     Dosage: UNK
     Dates: start: 20010901, end: 20010901
  12. LISINOPRIL [Concomitant]
  13. SINEMET [Concomitant]
  14. PHOSLO [Concomitant]
  15. ACETAMINOPHEN [Concomitant]
  16. ACETYLSALICYLIC ACID SRT [Concomitant]
  17. GADOLINIUM IN UNSPECIFIED DRUG [Suspect]
     Indication: NUCLEAR MAGNETIC RESONANCE IMAGING BRAIN
     Dosage: UNK
     Dates: start: 19980908, end: 19980908
  18. WARFARIN SODIUM [Concomitant]

REACTIONS (11)
  - SKIN FIBROSIS [None]
  - EXTREMITY CONTRACTURE [None]
  - RASH PRURITIC [None]
  - REFUSAL OF TREATMENT BY PATIENT [None]
  - RAYNAUD'S PHENOMENON [None]
  - FIBROSIS [None]
  - PAIN [None]
  - GENERAL PHYSICAL HEALTH DETERIORATION [None]
  - NEPHROGENIC SYSTEMIC FIBROSIS [None]
  - DEFORMITY [None]
  - JOINT CONTRACTURE [None]
